FAERS Safety Report 22297747 (Version 1)
Quarter: 2023Q2

REPORT INFORMATION
  Report Type: Spontaneous
  Country: CA (occurrence: TH)
  Receive Date: 20230509
  Receipt Date: 20230509
  Transmission Date: 20230722
  Serious: Yes (Hospitalization)
  Sender: FDA-Public Use
  Company Number: CA-STRIDES ARCOLAB LIMITED-2023SP006680

PATIENT
  Age: 49 Year
  Sex: Male

DRUGS (4)
  1. DEXAMETHASONE [Suspect]
     Active Substance: DEXAMETHASONE
     Indication: COVID-19
     Dosage: UNK
     Route: 042
  2. HYDROCORTISONE [Suspect]
     Active Substance: HYDROCORTISONE
     Indication: COVID-19
     Dosage: UNK
     Route: 065
  3. FAVIPIRAVIR [Concomitant]
     Active Substance: FAVIPIRAVIR
     Indication: COVID-19
     Dosage: UNK
     Route: 048
  4. COLISTIN [Concomitant]
     Active Substance: COLISTIN
     Indication: Pseudomonas infection
     Dosage: UNK
     Route: 065

REACTIONS (5)
  - Lower gastrointestinal haemorrhage [Recovered/Resolved]
  - Pneumonia [Recovered/Resolved]
  - Septic shock [Recovered/Resolved]
  - Cytomegalovirus colitis [Recovered/Resolved]
  - Off label use [Unknown]
